FAERS Safety Report 7251267-6 (Version None)
Quarter: 2011Q1

REPORT INFORMATION
  Report Type: 
  Country: None (occurrence: None)
  Receive Date: 20110119
  Receipt Date: 20110104
  Transmission Date: 20110831
  Serious: Yes (Other)
  Sender: FDA-Public Use
  Company Number: 2010P1003431

PATIENT
  Age: 48 Year
  Sex: Female
  Weight: 55.3388 kg

DRUGS (11)
  1. TRAMADOL 50 MG [Concomitant]
  2. FENTANYL-25 [Suspect]
     Indication: SCLERODERMA
     Dosage: 25 MCG/HR;Q72H;TDER
     Route: 062
     Dates: start: 20100701, end: 20101216
  3. PREDNISONE [Concomitant]
  4. PINDOLL [Concomitant]
  5. LORTAB (ACETAMINOPHEN/HYDROCODONE) [Concomitant]
  6. PERCOCET [Concomitant]
  7. FENTANYL [Suspect]
     Indication: PAIN IN EXTREMITY
     Dosage: 75 MCG/HR;Q72H;TDER
     Route: 062
     Dates: start: 20101216
  8. PLAQUENIL [Concomitant]
  9. TOPAMAX [Concomitant]
  10. DEPAKOTE [Concomitant]
  11. PREV MEDS [Concomitant]

REACTIONS (3)
  - STRESS [None]
  - PAIN IN EXTREMITY [None]
  - OEDEMA PERIPHERAL [None]
